FAERS Safety Report 6390830-1 (Version None)
Quarter: 2009Q4

REPORT INFORMATION
  Report Type: 
  Country: None (occurrence: None)
  Receive Date: 20091001
  Receipt Date: 20090629
  Transmission Date: 20100525
  Serious: No
  Sender: FDA-Public Use
  Company Number: 1000007095

PATIENT
  Age: 56 Year
  Sex: Female

DRUGS (6)
  1. BYSTOLIC [Suspect]
     Indication: ATRIAL FIBRILLATION
     Dosage: 5 MG (5 MG, 1 IN 1 D), ORAL
     Route: 048
     Dates: start: 20090626
  2. CHERATUSSIN AC (SYRUP) [Suspect]
     Indication: COUGH
     Dosage: ORAL
     Route: 048
  3. ASCORBIC ACID [Concomitant]
  4. LEXAPRO [Concomitant]
  5. VITAMIN D3 [Concomitant]
  6. CALCIUM [Concomitant]

REACTIONS (1)
  - PRURITUS [None]
